FAERS Safety Report 5393446-9 (Version None)
Quarter: 2007Q3

REPORT INFORMATION
  Report Type: 
  Country: None (occurrence: None)
  Receive Date: 20070723
  Receipt Date: 20060724
  Transmission Date: 20080115
  Serious: No
  Sender: FDA-Public Use
  Company Number: A0607023A

PATIENT
  Age: 42 Year
  Sex: Female

DRUGS (4)
  1. AVANDIA [Suspect]
  2. METFORMIN HCL [Suspect]
  3. FORTAMET [Suspect]
     Dosage: 1000U TWICE PER DAY
  4. LANTUS [Suspect]
     Dosage: 22UD PER DAY

REACTIONS (1)
  - BLOOD GLUCOSE INCREASED [None]
